FAERS Safety Report 13349608 (Version 2)
Quarter: 2018Q3

REPORT INFORMATION
  Report Type: Report from Study
  Country: CA (occurrence: CA)
  Receive Date: 20170320
  Receipt Date: 20180803
  Transmission Date: 20181010
  Serious: No
  Sender: FDA-Public Use
  Company Number: PHHY2017CA012498

PATIENT
  Sex: Male

DRUGS (1)
  1. GILENYA [Suspect]
     Active Substance: FINGOLIMOD HYDROCHLORIDE
     Indication: RELAPSING-REMITTING MULTIPLE SCLEROSIS
     Dosage: 0.5 MG, QD
     Route: 048
     Dates: start: 20110809

REACTIONS (6)
  - Arthritis [Unknown]
  - Psoriasis [Unknown]
  - Blood count abnormal [Unknown]
  - Pain [Unknown]
  - Central nervous system lesion [Unknown]
  - Night sweats [Unknown]
